FAERS Safety Report 5361612-4 (Version None)
Quarter: 2007Q2

REPORT INFORMATION
  Report Type: 
  Country: None (occurrence: None)
  Receive Date: 20070530
  Receipt Date: 20070103
  Transmission Date: 20071010
  Serious: No
  Sender: FDA-Public Use
  Company Number: 2007PV027778

PATIENT
  Age: 56 Year
  Sex: Female
  Weight: 92.0802 kg

DRUGS (4)
  1. BYETTA [Suspect]
     Indication: GLUCOSE TOLERANCE IMPAIRED
     Dosage: 10;5 MCG;BID;SC
     Route: 058
     Dates: start: 20060901, end: 20060901
  2. BYETTA [Suspect]
     Indication: GLUCOSE TOLERANCE IMPAIRED
     Dosage: 10;5 MCG;BID;SC
     Route: 058
     Dates: start: 20061001
  3. GLUCOPHAGE [Concomitant]
  4. FORTAMET ER [Concomitant]

REACTIONS (4)
  - INJECTION SITE BRUISING [None]
  - INJECTION SITE HAEMORRHAGE [None]
  - INJECTION SITE PAIN [None]
  - WRONG TECHNIQUE IN DRUG USAGE PROCESS [None]
